FAERS Safety Report 9952865 (Version 2)
Quarter: 2014Q1

REPORT INFORMATION
  Report Type: Spontaneous
  Country: JP (occurrence: JP)
  Receive Date: 20140304
  Receipt Date: 20140304
  Transmission Date: 20141002
  Serious: Yes (Other)
  Sender: FDA-Public Use
  Company Number: PHHY2013JP123434

PATIENT
  Age: 82 Year
  Sex: Female

DRUGS (1)
  1. RIVASTIGMIN [Suspect]
     Indication: DEMENTIA ALZHEIMER^S TYPE
     Dosage: 18 MG, DAILY
     Route: 062

REACTIONS (5)
  - Suicidal ideation [Unknown]
  - Nightmare [Unknown]
  - Insomnia [Unknown]
  - Application site pruritus [Recovered/Resolved]
  - Application site erythema [Unknown]
